FAERS Safety Report 24126640 (Version 1)
Quarter: 2024Q3

REPORT INFORMATION
  Report Type: Spontaneous
  Country: EU (occurrence: None)
  Receive Date: 20240723
  Receipt Date: 20240723
  Transmission Date: 20241016
  Serious: Yes (Hospitalization)
  Sender: ETHYPHARM
  Company Number: None

PATIENT

DRUGS (4)
  1. BUPRENORPHINE HYDROCHLORIDE [Suspect]
     Active Substance: BUPRENORPHINE HYDROCHLORIDE
  2. COCAINE [Suspect]
     Active Substance: COCAINE
  3. AMPHETAMINE [Suspect]
     Active Substance: AMPHETAMINE
  4. ZOLPIDEM [Suspect]
     Active Substance: ZOLPIDEM TARTRATE

REACTIONS (2)
  - Physical abuse [Recovering/Resolving]
  - Chemical submission [Recovered/Resolved]
